FAERS Safety Report 14653496 (Version 1)
Quarter: 2018Q1

REPORT INFORMATION
  Report Type: Spontaneous
  Country: JP (occurrence: JP)
  Receive Date: 20180319
  Receipt Date: 20180319
  Transmission Date: 20180509
  Serious: Yes (Other)
  Sender: FDA-Public Use
  Company Number: JP-ASTELLAS-2018JP004846AA

PATIENT
  Age: 33 Year
  Sex: Female

DRUGS (1)
  1. PROGRAF [Suspect]
     Active Substance: TACROLIMUS\TACROLIMUS ANHYDROUS
     Indication: RHEUMATOID ARTHRITIS
     Route: 048

REACTIONS (3)
  - Foetal death [Unknown]
  - Maternal exposure during pregnancy [Unknown]
  - Prescribed underdose [Unknown]

NARRATIVE: CASE EVENT DATE: 201712
